FAERS Safety Report 24960672 (Version 1)
Quarter: 2025Q1

REPORT INFORMATION
  Report Type: Spontaneous
  Country: CN (occurrence: CN)
  Receive Date: 20250212
  Receipt Date: 20250212
  Transmission Date: 20250409
  Serious: Yes (Other)
  Sender: PFIZER
  Company Number: CN-PFIZER INC-PV202500015482

PATIENT
  Age: 59 Year
  Sex: Male
  Weight: 65 kg

DRUGS (2)
  1. VORICONAZOLE [Suspect]
     Active Substance: VORICONAZOLE
     Indication: Fungal infection
     Dosage: 200 MG, 2X/DAY
     Route: 041
     Dates: start: 20250122, end: 20250124
  2. VORICONAZOLE [Suspect]
     Active Substance: VORICONAZOLE
     Indication: Fungal infection
     Dosage: 200 MG, 2X/DAY
     Route: 041
     Dates: start: 20250120, end: 20250122

REACTIONS (3)
  - Altered state of consciousness [Unknown]
  - Disorganised speech [Unknown]
  - Off label use [Unknown]

NARRATIVE: CASE EVENT DATE: 20250122
